FAERS Safety Report 15381442 (Version 1)
Quarter: 2018Q3

REPORT INFORMATION
  Report Type: Spontaneous
  Country: US (occurrence: US)
  Receive Date: 20180913
  Receipt Date: 20180913
  Transmission Date: 20181010
  Serious: Yes (Other)
  Sender: FDA-Public Use
  Company Number: US-ASTELLAS-2018US031512

PATIENT
  Age: 71 Year
  Sex: Male

DRUGS (1)
  1. XTANDI [Suspect]
     Active Substance: ENZALUTAMIDE
     Indication: PROSTATE CANCER
     Route: 048
     Dates: start: 20180405, end: 20180707

REACTIONS (3)
  - Blood pressure increased [Not Recovered/Not Resolved]
  - Treatment noncompliance [Unknown]
  - Dizziness [Unknown]

NARRATIVE: CASE EVENT DATE: 20180707
